FAERS Safety Report 16181053 (Version 1)
Quarter: 2019Q2

REPORT INFORMATION
  Report Type: Other
  Country: MY (occurrence: MY)
  Receive Date: 20190410
  Receipt Date: 20190410
  Transmission Date: 20190711
  Serious: Yes (Other)
  Sender: FDA-Public Use
  Company Number: MY-EMD SERONO-9083111

PATIENT
  Age: 64 Year
  Sex: Female

DRUGS (1)
  1. REBIF [Suspect]
     Active Substance: INTERFERON BETA-1A
     Indication: RELAPSING-REMITTING MULTIPLE SCLEROSIS
     Route: 058
     Dates: start: 2003

REACTIONS (1)
  - Pemphigoid [Unknown]

NARRATIVE: CASE EVENT DATE: 2015
